FAERS Safety Report 21938655 (Version 1)
Quarter: 2023Q1

REPORT INFORMATION
  Report Type: Report from Study
  Country: US (occurrence: US)
  Receive Date: 20230201
  Receipt Date: 20230201
  Transmission Date: 20230417
  Serious: Yes (Death, Hospitalization)
  Sender: FDA-Public Use
  Company Number: US-EXELIXIS-CABO-21046988

PATIENT
  Age: 70 Year
  Sex: Male

DRUGS (5)
  1. CABOMETYX [Suspect]
     Active Substance: CABOZANTINIB S-MALATE
     Indication: Prostate cancer
     Dosage: 40 MG, QD
     Dates: start: 20211109
  2. ADVIL [Concomitant]
     Active Substance: IBUPROFEN
  3. LOSARTAN [Concomitant]
     Active Substance: LOSARTAN
  4. METOPROLOL [Concomitant]
     Active Substance: METOPROLOL
  5. OXYCODONE [Concomitant]
     Active Substance: OXYCODONE

REACTIONS (9)
  - Blood pressure increased [Not Recovered/Not Resolved]
  - Death [Fatal]
  - Cardiomyopathy [Not Recovered/Not Resolved]
  - Blood albumin decreased [Unknown]
  - Decreased appetite [Not Recovered/Not Resolved]
  - Taste disorder [Not Recovered/Not Resolved]
  - Weight decreased [Not Recovered/Not Resolved]
  - Off label use [Unknown]
  - Product dose omission issue [Unknown]

NARRATIVE: CASE EVENT DATE: 20211129
